FAERS Safety Report 7331019-9 (Version None)
Quarter: 2011Q1

REPORT INFORMATION
  Report Type: 
  Country: None (occurrence: None)
  Receive Date: 20110304
  Receipt Date: 20110222
  Transmission Date: 20110831
  Serious: Yes (Hospitalization)
  Sender: FDA-Public Use
  Company Number: FR-JNJFOC-20110206428

PATIENT
  Age: 88 Year
  Sex: Male

DRUGS (8)
  1. LAROXYL [Concomitant]
     Route: 065
  2. EQUANIL [Concomitant]
     Route: 065
  3. RIVOTRIL [Concomitant]
     Route: 065
  4. CLAFORAN [Concomitant]
     Route: 065
  5. TAVANIC [Suspect]
     Indication: SEPSIS
     Route: 065
  6. ESOMEPRAZOLE [Concomitant]
     Route: 065
  7. DURAGESIC-100 [Concomitant]
     Route: 065
  8. ACTISKENAN [Concomitant]
     Route: 065

REACTIONS (9)
  - AGITATION [None]
  - DYSKINESIA [None]
  - DISTURBANCE IN ATTENTION [None]
  - HYPERNATRAEMIA [None]
  - DEHYDRATION [None]
  - BLOOD UREA INCREASED [None]
  - METABOLIC ENCEPHALOPATHY [None]
  - CLONUS [None]
  - BLOOD CREATININE INCREASED [None]
